FAERS Safety Report 8469673-0 (Version None)
Quarter: 2012Q2

REPORT INFORMATION
  Report Type: 
  Country: None (occurrence: None)
  Receive Date: 20120626
  Receipt Date: 20120621
  Transmission Date: 20120825
  Serious: Yes (Other)
  Sender: FDA-Public Use
  Company Number: CA-ROCHE-1005435

PATIENT
  Sex: Male

DRUGS (5)
  1. ALVESCO [Concomitant]
  2. VENTOLIN [Concomitant]
  3. XOLAIR [Suspect]
     Indication: ASTHMA
     Route: 058
     Dates: start: 20110812
  4. DESLORATADINE [Concomitant]
  5. SINGULAIR [Concomitant]

REACTIONS (7)
  - BLOOD PRESSURE INCREASED [None]
  - COUGH [None]
  - VERTIGO [None]
  - MUSCULOSKELETAL DISCOMFORT [None]
  - DYSPNOEA [None]
  - VIRAL INFECTION [None]
  - JOINT SWELLING [None]
